FAERS Safety Report 15722546 (Version 1)
Quarter: 2018Q4

REPORT INFORMATION
  Report Type: Spontaneous
  Country: US (occurrence: US)
  Receive Date: 20181214
  Receipt Date: 20181214
  Transmission Date: 20190205
  Serious: No
  Sender: FDA-Public Use
  Company Number: US-VERTEX PHARMACEUTICALS-2018-009427

PATIENT
  Sex: Male

DRUGS (17)
  1. SODIUM CHLORIDE. [Concomitant]
     Active Substance: SODIUM CHLORIDE
  2. CHOLECALCIFEROL [Concomitant]
     Active Substance: CHOLECALCIFEROL
  3. SCANDISHAKE MIX [Concomitant]
     Active Substance: DIETARY SUPPLEMENT
  4. FLONASE                            /00908302/ [Concomitant]
     Active Substance: MOMETASONE FUROATE
  5. SYMDEKO [Suspect]
     Active Substance: IVACAFTOR\TEZACAFTOR
     Indication: CYSTIC FIBROSIS
     Dosage: 100MG TEZACAFTOR/150MG IVACAFTOR AM; 150MG IVACAFTOR PM
     Route: 048
     Dates: start: 201810
  6. PULMOZYME [Concomitant]
     Active Substance: DORNASE ALFA
  7. AMYLASE [Concomitant]
     Active Substance: AMYLASE
  8. MIRALAX [Concomitant]
     Active Substance: POLYETHYLENE GLYCOL 3350
  9. TOBI [Concomitant]
     Active Substance: TOBRAMYCIN
  10. PROTASE [Concomitant]
  11. ACYCLOVIR                          /00587301/ [Concomitant]
     Active Substance: ACYCLOVIR
     Route: 048
  12. AZITHROMYCIN ANHYDROUS. [Concomitant]
     Active Substance: AZITHROMYCIN ANHYDROUS
  13. PREVACID [Concomitant]
     Active Substance: LANSOPRAZOLE
  14. LIPASE [Concomitant]
     Active Substance: LIPASE
  15. MEPHYTON [Concomitant]
     Active Substance: PHYTONADIONE
  16. LANTUS [Concomitant]
     Active Substance: INSULIN GLARGINE
  17. AQUADEKS                           /07679501/ [Concomitant]
     Active Substance: MINERALS\VITAMINS

REACTIONS (2)
  - Abdominal pain [Unknown]
  - Product dose omission [Unknown]

NARRATIVE: CASE EVENT DATE: 2018
